FAERS Safety Report 23314725 (Version 1)
Quarter: 2023Q4

REPORT INFORMATION
  Report Type: Spontaneous
  Country: FR (occurrence: FR)
  Receive Date: 20231219
  Receipt Date: 20231219
  Transmission Date: 20240110
  Serious: Yes (Other)
  Sender: FDA-Public Use
  Company Number: FR-ORGANON-O2311FRA003273

PATIENT
  Sex: Female
  Weight: 68 kg

DRUGS (5)
  1. LIPTRUZET [Suspect]
     Active Substance: ATORVASTATIN CALCIUM\EZETIMIBE
     Indication: Hypercholesterolaemia
     Dosage: LIPTRUZET 10/20 ONE TABLET  PER DAY
     Route: 048
     Dates: start: 20230419, end: 20230605
  2. LIPTRUZET [Suspect]
     Active Substance: ATORVASTATIN CALCIUM\EZETIMIBE
     Indication: Diabetes mellitus
     Dosage: LIPTRUZET 10/20 ONE TABLET  PER DAY
     Route: 048
     Dates: end: 202306
  3. RENITEC [Concomitant]
     Indication: Hypertension
     Dosage: 20 MILLIGRAM, QD
     Route: 048
  4. LOPRESSOR [Concomitant]
     Active Substance: METOPROLOL TARTRATE
     Indication: Hypertension
     Dosage: 200 MILLIGRAM, QD
     Route: 048
  5. METFORMIN HYDROCHLORIDE [Concomitant]
     Active Substance: METFORMIN HYDROCHLORIDE
     Indication: Diabetes mellitus
     Dosage: 850 MILLIGRAM, TID
     Route: 048

REACTIONS (2)
  - Hepatitis [Recovering/Resolving]
  - Hepatic cytolysis [Recovering/Resolving]
